FAERS Safety Report 9220308 (Version 1)
Quarter: 2013Q2

REPORT INFORMATION
  Report Type: Spontaneous
  Country: BR (occurrence: BR)
  Receive Date: 20130409
  Receipt Date: 20130409
  Transmission Date: 20140414
  Serious: Yes (Other)
  Sender: FDA-Public Use
  Company Number: PHHY2013BR033086

PATIENT
  Age: 77 Year
  Sex: Female

DRUGS (12)
  1. BUFFERIN [Suspect]
     Indication: MYOCARDIAL INFARCTION
     Dosage: 1 DF, DAILY
     Route: 048
  2. AAS [Suspect]
     Indication: MYOCARDIAL INFARCTION
     Dosage: 2 DF, DAILY
     Route: 048
  3. SOMALGIN [Suspect]
     Indication: MYOCARDIAL INFARCTION
     Dosage: 1 DF, DAILY
     Route: 048
  4. INSULINE [Concomitant]
     Indication: DIABETES MELLITUS
     Dosage: 35 MG, (20 MG AT MORNING AND 15 MG AT NIGHT BEFORE DINNER)
     Route: 058
  5. SUSTRATE [Concomitant]
     Indication: CARDIAC DISORDER
     Dosage: 3 DF, DAILY
     Route: 048
  6. CARDIZEM [Concomitant]
     Indication: CARDIAC DISORDER
     Dosage: 2 DF, DAILY
     Route: 048
  7. LABIRIN [Concomitant]
     Indication: DIZZINESS
     Dosage: 1 DF, AT NIGHT
     Route: 048
  8. DIOVAN HCT [Concomitant]
     Indication: BLOOD PRESSURE
     Dosage: 2 DF, DAILY
     Route: 048
  9. VENALOT [Concomitant]
     Indication: VARICOSE VEIN
     Dosage: 1 DF, DAILY
     Route: 048
  10. VENALOT [Concomitant]
     Indication: PAIN IN EXTREMITY
  11. METFORMIN [Concomitant]
     Indication: DIABETES MELLITUS MANAGEMENT
     Dosage: 1 DF, DAILY
     Route: 048
  12. METFORMIN [Concomitant]
     Indication: DIABETES MELLITUS MANAGEMENT
     Dosage: 1 DF, DAILY
     Route: 048

REACTIONS (3)
  - Gastrointestinal infection [Recovered/Resolved]
  - Dyspepsia [Recovered/Resolved]
  - Gastrointestinal disorder [Recovered/Resolved]
